FAERS Safety Report 4710813-4 (Version None)
Quarter: 2005Q3

REPORT INFORMATION
  Report Type: 
  Country: None (occurrence: None)
  Receive Date: 20050708
  Receipt Date: 20050626
  Transmission Date: 20060218
  Serious: Yes (Other)
  Sender: FDA-Public Use
  Company Number: 2005092477

PATIENT
  Age: 51 Year
  Sex: Female
  Weight: 106.5953 kg

DRUGS (8)
  1. UNISOM [Suspect]
     Indication: INSOMNIA
     Dosage: 1 SLEEPGEL QOD HS, ORAL
     Route: 048
     Dates: end: 20050624
  2. CARBAMAZEPINE [Concomitant]
  3. QUINAPRIL HCL [Concomitant]
  4. FEVERFEW (HERBAL EXTRACTS NOS) [Concomitant]
  5. LEVOTHYROXINE SODIUM [Concomitant]
  6. TOCOPHEROL (TOCOPHEROL) [Concomitant]
  7. ERGOCALCIFEROL (ERGOCALCIFEROL) [Concomitant]
  8. CALCIUM (CALCIUM) [Concomitant]

REACTIONS (1)
  - AMNESIA [None]
